FAERS Safety Report 6428242-4 (Version None)
Quarter: 2009Q4

REPORT INFORMATION
  Report Type: 
  Country: None (occurrence: None)
  Receive Date: 20091104
  Receipt Date: 20091104
  Transmission Date: 20100525
  Serious: Yes (Hospitalization)
  Sender: FDA-Public Use
  Company Number: None

PATIENT
  Age: 92 Year
  Sex: Male

DRUGS (2)
  1. ASPIRIN [Suspect]
     Indication: CEREBROVASCULAR OPERATION
     Dosage: 81 MG EVERY DAY PO
     Route: 048
     Dates: start: 20090311, end: 20090312
  2. HEPARIN [Suspect]
     Dosage: 5000 UNITS TID SQ
     Route: 058
     Dates: start: 20090310, end: 20090312

REACTIONS (2)
  - ACUTE RESPIRATORY DISTRESS SYNDROME [None]
  - HAEMATOMA [None]
